FAERS Safety Report 19873191 (Version 1)
Quarter: 2021Q3

REPORT INFORMATION
  Report Type: Spontaneous
  Country: CA (occurrence: CA)
  Receive Date: 20210923
  Receipt Date: 20210923
  Transmission Date: 20211014
  Serious: Yes (Disabling)
  Sender: FDA-Public Use
  Company Number: CA-ASTRAZENECA-2021A727940

PATIENT
  Age: 82 Year
  Sex: Female

DRUGS (12)
  1. JANUVIA [Concomitant]
     Active Substance: SITAGLIPTIN PHOSPHATE
  2. MEGESTROL [Concomitant]
     Active Substance: MEGESTROL
  3. MINOCYCLINE [Concomitant]
     Active Substance: MINOCYCLINE HYDROCHLORIDE
  4. LANSOPRAZOLE. [Concomitant]
     Active Substance: LANSOPRAZOLE
  5. EZETIMIBE. [Concomitant]
     Active Substance: EZETIMIBE
  6. GALANTAMINE. [Concomitant]
     Active Substance: GALANTAMINE
  7. TAGRISSO [Suspect]
     Active Substance: OSIMERTINIB
     Indication: LUNG NEOPLASM MALIGNANT
     Route: 048
  8. ATORVASTATIN [Concomitant]
     Active Substance: ATORVASTATIN
  9. FERROUS FUMARATE [Concomitant]
     Active Substance: FERROUS FUMARATE
  10. FUROSEMIDE. [Concomitant]
     Active Substance: FUROSEMIDE
  11. PREGABALIN. [Concomitant]
     Active Substance: PREGABALIN
  12. FORXIGA [Concomitant]
     Active Substance: DAPAGLIFLOZIN

REACTIONS (2)
  - Angiopathy [Not Recovered/Not Resolved]
  - Cognitive disorder [Not Recovered/Not Resolved]
